FAERS Safety Report 14452420 (Version 1)
Quarter: 2018Q1

REPORT INFORMATION
  Report Type: Spontaneous
  Country: US (occurrence: US)
  Receive Date: 20180129
  Receipt Date: 20180129
  Transmission Date: 20180509
  Serious: Yes (Other)
  Sender: FDA-Public Use
  Company Number: US-PFIZER INC-2018035434

PATIENT
  Sex: Female
  Weight: 87.9 kg

DRUGS (1)
  1. GABAPENTIN. [Suspect]
     Active Substance: GABAPENTIN
     Indication: DIABETIC NEUROPATHY
     Dosage: 600 MG, 3X/DAY (600 MG TABLETS BY MOUTH THREE TIME DAILY)
     Route: 048
     Dates: end: 201707

REACTIONS (2)
  - Amnesia [Recovering/Resolving]
  - Product use in unapproved indication [Unknown]
